FAERS Safety Report 15599057 (Version 1)
Quarter: 2018Q4

REPORT INFORMATION
  Report Type: Spontaneous
  Country: US (occurrence: US)
  Receive Date: 20181108
  Receipt Date: 20181108
  Transmission Date: 20190205
  Serious: No
  Sender: FDA-Public Use
  Company Number: US-PERRIGO-18US006943

PATIENT
  Age: 48 Year
  Sex: Male
  Weight: 149.66 kg

DRUGS (6)
  1. FAMOTIDINE. [Suspect]
     Active Substance: FAMOTIDINE
     Indication: GASTROOESOPHAGEAL REFLUX DISEASE
     Dosage: 20 MG, BID
     Route: 048
     Dates: start: 20180515, end: 20180629
  2. MULTIVITAMIN                       /07504101/ [Concomitant]
     Active Substance: VITAMINS
     Indication: GASTRIC BYPASS
     Dosage: UNK
     Route: 065
     Dates: start: 2010
  3. FAMOTIDINE. [Suspect]
     Active Substance: FAMOTIDINE
     Indication: DIARRHOEA
     Dosage: 20 MG, BID
     Route: 048
     Dates: start: 2010, end: 20180514
  4. FAMOTIDINE. [Suspect]
     Active Substance: FAMOTIDINE
     Dosage: 20 MG, BID
     Route: 048
     Dates: start: 20180630
  5. SYNTHROID [Concomitant]
     Active Substance: LEVOTHYROXINE SODIUM
     Indication: HYPOTHYROIDISM
     Dosage: UNK
     Route: 065
     Dates: start: 2010
  6. CALCIUM WITH VITAMIN D3            /09279801/ [Concomitant]
     Indication: GASTRIC BYPASS
     Dosage: UNK, TID
     Route: 065
     Dates: start: 2010

REACTIONS (4)
  - Incorrect product administration duration [Unknown]
  - Therapeutic response unexpected [Unknown]
  - Off label use [Unknown]
  - Drug effect decreased [Unknown]

NARRATIVE: CASE EVENT DATE: 2010
